FAERS Safety Report 5129369-X (Version None)
Quarter: 2006Q4

REPORT INFORMATION
  Report Type: 
  Country: None (occurrence: None)
  Receive Date: 20061018
  Receipt Date: 20061006
  Transmission Date: 20070319
  Serious: Yes (Other)
  Sender: FDA-Public Use
  Company Number: FR-AVENTIS-200613467FR

PATIENT
  Age: 55 Year
  Sex: Female

DRUGS (1)
  1. RIFINAH [Suspect]
     Indication: ANTIBIOTIC PROPHYLAXIS
     Route: 048

REACTIONS (4)
  - ALANINE AMINOTRANSFERASE INCREASED [None]
  - ASPARTATE AMINOTRANSFERASE INCREASED [None]
  - HEPATOCELLULAR DAMAGE [None]
  - SJOGREN'S SYNDROME [None]
